FAERS Safety Report 5409298-4 (Version None)
Quarter: 2007Q3

REPORT INFORMATION
  Report Type: 
  Country: None (occurrence: None)
  Receive Date: 20070807
  Receipt Date: 20070807
  Transmission Date: 20080115
  Serious: Yes (Death)
  Sender: FDA-Public Use
  Company Number: None

PATIENT
  Sex: Male
  Weight: 111.5849 kg

DRUGS (1)
  1. OXYCONTIN [Suspect]
     Indication: DRUG ABUSER
     Dosage: 160 MG -ALLEGED- NASAL
     Route: 045
     Dates: start: 20060809, end: 20060809

REACTIONS (1)
  - DRUG TOXICITY [None]
